FAERS Safety Report 7363428-6 (Version None)
Quarter: 2011Q1

REPORT INFORMATION
  Report Type: 
  Country: None (occurrence: None)
  Receive Date: 20110321
  Receipt Date: 20110308
  Transmission Date: 20110831
  Serious: Yes (Hospitalization, Other)
  Sender: FDA-Public Use
  Company Number: US-JNJFOC-20090707501

PATIENT
  Sex: Female
  Weight: 47.4 kg

DRUGS (6)
  1. REMICADE [Suspect]
     Route: 042
  2. METRONIDAZOLE [Concomitant]
  3. HUMIRA [Concomitant]
     Route: 050
  4. REMICADE [Suspect]
     Indication: INFLAMMATORY BOWEL DISEASE
     Route: 042
  5. REMICADE [Suspect]
     Dosage: TOTAL 25 DOSES
     Route: 042
  6. PREDNISONE [Concomitant]

REACTIONS (2)
  - CROHN'S DISEASE [None]
  - SEPSIS [None]
